FAERS Safety Report 6899690-3 (Version None)
Quarter: 2010Q3

REPORT INFORMATION
  Report Type: 
  Country: None (occurrence: None)
  Receive Date: 20100708
  Receipt Date: 20090908
  Transmission Date: 20110219
  Serious: Yes (Other)
  Sender: FDA-Public Use
  Company Number: 2009246456

PATIENT
  Age: 37 Year
  Sex: Male
  Weight: 95.3 kg

DRUGS (1)
  1. CHANTIX [Suspect]
     Indication: SMOKING CESSATION THERAPY
     Dosage: 0.5 MG, 1X/DAY
     Dates: start: 20090618, end: 20090718

REACTIONS (3)
  - CRYING [None]
  - DEPRESSED MOOD [None]
  - HOMICIDAL IDEATION [None]
